FAERS Safety Report 20844080 (Version 1)
Quarter: 2022Q2

REPORT INFORMATION
  Report Type: Report from Study
  Country: BR (occurrence: BR)
  Receive Date: 20220518
  Receipt Date: 20220518
  Transmission Date: 20220721
  Serious: Yes (Other)
  Sender: FDA-Public Use
  Company Number: BR-JNJFOC-20220527404

PATIENT
  Sex: Female
  Weight: 86 kg

DRUGS (1)
  1. INFLIXIMAB [Suspect]
     Active Substance: INFLIXIMAB
     Indication: Crohn^s disease
     Dosage: PRESCRIBED TREATMENT REGIMEN 4 VIALS?LAS APPLICATION: 21-MAR-2022.
     Route: 042
     Dates: start: 20210106

REACTIONS (7)
  - Haemorrhage [Recovered/Resolved]
  - Hypersensitivity [Recovered/Resolved]
  - Alopecia [Recovered/Resolved]
  - Nausea [Recovered/Resolved]
  - Vomiting [Recovered/Resolved]
  - Diarrhoea [Recovered/Resolved]
  - Onychoclasis [Recovered/Resolved]
